FAERS Safety Report 4406341-6 (Version None)
Quarter: 2004Q3

REPORT INFORMATION
  Report Type: 
  Country: None (occurrence: None)
  Receive Date: 20040723
  Receipt Date: 20030626
  Transmission Date: 20050211
  Serious: No
  Sender: FDA-Public Use
  Company Number: US-GLAXOSMITHKLINE-A0414041A

PATIENT
  Age: 54 Year
  Sex: Female

DRUGS (11)
  1. AVANDIA [Suspect]
     Dosage: 8MG PER DAY
     Route: 048
     Dates: start: 20030401
  2. LANTUS [Suspect]
     Route: 048
     Dates: start: 20030601
  3. ZOCOR [Concomitant]
     Route: 048
  4. WELLBUTRIN SR [Concomitant]
     Route: 048
  5. DILTIAZEM [Concomitant]
     Route: 048
  6. HYDROCHLOROTHIAZIDE [Concomitant]
     Route: 048
  7. GLUCOTROL XL [Concomitant]
     Route: 048
  8. LISINOPRIL [Concomitant]
     Route: 048
  9. ALLOPURINOL [Concomitant]
     Route: 048
  10. LASIX [Concomitant]
     Route: 048
  11. NEURONTIN [Concomitant]
     Route: 048

REACTIONS (10)
  - BLOOD MAGNESIUM DECREASED [None]
  - CARDIAC FLUTTER [None]
  - CHEST PAIN [None]
  - DIABETIC NEUROPATHY [None]
  - DYSPNOEA [None]
  - FEELING HOT [None]
  - HEART RATE INCREASED [None]
  - MUSCLE TIGHTNESS [None]
  - NAUSEA [None]
  - SWELLING [None]
